FAERS Safety Report 13610838 (Version 5)
Quarter: 2017Q4

REPORT INFORMATION
  Report Type: Spontaneous
  Country: US (occurrence: US)
  Receive Date: 20170605
  Receipt Date: 20171012
  Transmission Date: 20180320
  Serious: Yes (Congenital Anomaly, Other)
  Sender: FDA-Public Use
  Company Number: PHEH2017US016606

PATIENT
  Sex: Male

DRUGS (2)
  1. ZOFRAN [Suspect]
     Active Substance: ONDANSETRON HYDROCHLORIDE
     Indication: FOETAL EXPOSURE DURING PREGNANCY
     Dosage: MOTHER^S DOSE: 08 MG, PRN
     Route: 064
  2. ZOFRAN ODT [Suspect]
     Active Substance: ONDANSETRON HYDROCHLORIDE
     Indication: FOETAL EXPOSURE DURING PREGNANCY
     Dosage: MOTHER^S DOSE: 8 MG, BID
     Route: 064

REACTIONS (20)
  - Cough [Unknown]
  - Nasal congestion [Unknown]
  - Tibia fracture [Unknown]
  - Cleft lip [Unknown]
  - Eustachian tube dysfunction [Unknown]
  - Foetal exposure during pregnancy [Unknown]
  - Oropharyngeal pain [Unknown]
  - Hand fracture [Unknown]
  - Pyrexia [Unknown]
  - Ear pain [Unknown]
  - Pharyngitis streptococcal [Unknown]
  - Upper respiratory tract infection [Unknown]
  - Premature baby [Unknown]
  - Otitis media acute [Unknown]
  - Injury [Unknown]
  - Rhinorrhoea [Unknown]
  - Fibula fracture [Unknown]
  - Ligament sprain [Unknown]
  - Cleft palate [Unknown]
  - Acute sinusitis [Unknown]

NARRATIVE: CASE EVENT DATE: 20020213
